FAERS Safety Report 18670181 (Version 9)
Quarter: 2024Q4

REPORT INFORMATION
  Report Type: Spontaneous
  Country: US (occurrence: US)
  Receive Date: 20201228
  Receipt Date: 20241217
  Transmission Date: 20250114
  Serious: Yes (Hospitalization, Other)
  Sender: PFIZER
  Company Number: US-PFIZER INC-2020511406

PATIENT
  Age: 63 Year
  Sex: Female
  Weight: 88.5 kg

DRUGS (8)
  1. XELJANZ XR [Suspect]
     Active Substance: TOFACITINIB CITRATE
     Indication: Rheumatoid arthritis
     Dosage: 11 MG, 1X/DAY
     Route: 048
     Dates: start: 2018
  2. XELJANZ XR [Suspect]
     Active Substance: TOFACITINIB CITRATE
     Dosage: 11 MG, 1X/DAY
     Route: 048
  3. XELJANZ XR [Suspect]
     Active Substance: TOFACITINIB CITRATE
     Dosage: 11 MG PO (PER ORAL) QD (EVERYDAY)
     Route: 048
  4. COVID-19 VACCINE [Concomitant]
     Indication: COVID-19 immunisation
     Dosage: DOSE  NUMBER UNKONWN; SINGLE
  5. METHOTREXATE [Concomitant]
     Active Substance: METHOTREXATE
     Dosage: UNK
     Dates: start: 2013
  6. VITAMIN D3 [Concomitant]
     Active Substance: CHOLECALCIFEROL
     Dosage: UNK
  7. FOLIC ACID [Concomitant]
     Active Substance: FOLIC ACID
     Dosage: 0.4 MG
  8. MELOXICAM [Concomitant]
     Active Substance: MELOXICAM
     Dosage: 10 MG

REACTIONS (3)
  - Nephrolithiasis [Recovering/Resolving]
  - Chronic kidney disease [Unknown]
  - Nasopharyngitis [Not Recovered/Not Resolved]

NARRATIVE: CASE EVENT DATE: 20201215
